FAERS Safety Report 7115644-6 (Version None)
Quarter: 2010Q4

REPORT INFORMATION
  Report Type: 
  Country: None (occurrence: None)
  Receive Date: 20101122
  Receipt Date: 20101112
  Transmission Date: 20110411
  Serious: Yes (Life-Threatening, Hospitalization, Other)
  Sender: FDA-Public Use
  Company Number: DE-MPIJNJ-2010-05000

PATIENT

DRUGS (5)
  1. VELCADE [Suspect]
     Indication: MULTIPLE MYELOMA
     Dosage: 2.2 MG, CYCLIC
     Route: 042
     Dates: start: 20100511, end: 20100831
  2. KEVATRIL [Concomitant]
     Indication: ANTIEMETIC SUPPORTIVE CARE
     Dosage: 1 MG, UNK
     Route: 042
     Dates: start: 20100511, end: 20100831
  3. DEXAMETHASONE [Concomitant]
     Indication: MULTIPLE MYELOMA
     Dosage: 20 MG, UNK
     Route: 048
     Dates: start: 20100511, end: 20100831
  4. COTRIM FORTE EU RHO [Concomitant]
  5. ACYCLOVIR [Concomitant]

REACTIONS (2)
  - LONG QT SYNDROME [None]
  - PULMONARY HYPERTENSION [None]
